FAERS Safety Report 4289926-X (Version None)
Quarter: 2004Q1

REPORT INFORMATION
  Report Type: 
  Country: None (occurrence: None)
  Receive Date: 20040209
  Receipt Date: 20030813
  Transmission Date: 20041129
  Serious: Yes (Hospitalization, Other)
  Sender: FDA-Public Use
  Company Number: 200317353US

PATIENT
  Sex: Male
  Weight: 79.5 kg

DRUGS (2)
  1. LANTUS [Suspect]
     Indication: DIABETES MELLITUS INSULIN-DEPENDENT
     Dosage: DOSE UNIT: UNITS
     Route: 058
  2. HUMALOG [Concomitant]
     Indication: DIABETES MELLITUS INSULIN-DEPENDENT
     Dosage: DOSE: SLIDING SCALE; FREQUENCY: BEFORE MEALS
     Route: 051

REACTIONS (6)
  - BLOOD GLUCOSE DECREASED [None]
  - BRAIN NEOPLASM BENIGN [None]
  - BRAIN OEDEMA [None]
  - CONFUSIONAL STATE [None]
  - HEADACHE [None]
  - HYPOGLYCAEMIA [None]
